FAERS Safety Report 10098789 (Version 3)
Quarter: 2014Q2

REPORT INFORMATION
  Report Type: Spontaneous
  Country: GB (occurrence: GB)
  Receive Date: 20140423
  Receipt Date: 20140605
  Transmission Date: 20141212
  Serious: No
  Sender: FDA-Public Use
  Company Number: GB-IPSEN BIOPHARMACEUTICALS, INC.-2014-1925

PATIENT
  Age: 8 Year
  Sex: Female

DRUGS (2)
  1. LANREOTIDE [Suspect]
     Indication: PANCREATIC DISORDER
     Dosage: 10 MG
     Route: 030
     Dates: start: 200910
  2. LANREOTIDE [Suspect]
     Indication: OFF LABEL USE

REACTIONS (3)
  - Injection site urticaria [Recovered/Resolved]
  - Injection site hypersensitivity [Recovered/Resolved]
  - Incorrect route of drug administration [Unknown]
